FAERS Safety Report 8222531-9 (Version None)
Quarter: 2012Q1

REPORT INFORMATION
  Report Type: 
  Country: None (occurrence: None)
  Receive Date: 20120320
  Receipt Date: 20120315
  Transmission Date: 20120608
  Serious: Yes (Other)
  Sender: FDA-Public Use
  Company Number: US-PFIZER INC-2011296139

PATIENT
  Sex: Female

DRUGS (3)
  1. CHANTIX [Suspect]
     Dosage: UNK
     Dates: start: 20090601, end: 20090701
  2. TRAMADOL [Concomitant]
     Indication: ANALGESIC THERAPY
     Dosage: UNK
     Dates: start: 20060101, end: 20100101
  3. CHANTIX [Suspect]
     Indication: SMOKING CESSATION THERAPY
     Dosage: UNK
     Dates: start: 20090401, end: 20090401

REACTIONS (4)
  - DEPRESSION [None]
  - AGGRESSION [None]
  - ANXIETY [None]
  - SUICIDE ATTEMPT [None]
